FAERS Safety Report 18173326 (Version 2)
Quarter: 2020Q3

REPORT INFORMATION
  Report Type: Spontaneous
  Country: US (occurrence: US)
  Receive Date: 20200819
  Receipt Date: 20200908
  Transmission Date: 20201103
  Serious: No
  Sender: FDA-Public Use
  Company Number: US-ALKERMES INC.-ALK-2020-003349

PATIENT
  Sex: Female
  Weight: 56.69 kg

DRUGS (1)
  1. VIVITROL [Suspect]
     Active Substance: NALTREXONE
     Indication: ALCOHOLISM
     Dosage: 380 MILLIGRAM, QMO
     Route: 030
     Dates: start: 20200728

REACTIONS (3)
  - Alcoholism [Not Recovered/Not Resolved]
  - Feeling abnormal [Recovering/Resolving]
  - Amnesia [Recovering/Resolving]
